FAERS Safety Report 7780310-0 (Version None)
Quarter: 2011Q3

REPORT INFORMATION
  Report Type: 
  Country: None (occurrence: None)
  Receive Date: 20110927
  Receipt Date: 20110921
  Transmission Date: 20111222
  Serious: Yes (Death, Life-Threatening, Hospitalization)
  Sender: FDA-Public Use
  Company Number: FR-JNJFOC-20110908854

PATIENT
  Sex: Male
  Weight: 54 kg

DRUGS (4)
  1. PREZISTA [Suspect]
     Indication: HIV INFECTION
     Route: 048
     Dates: start: 20100209, end: 20100222
  2. NORVIR [Suspect]
     Indication: HIV INFECTION
     Route: 048
     Dates: end: 20100222
  3. ISENTRESS [Suspect]
     Indication: HIV INFECTION
     Route: 048
     Dates: end: 20100222
  4. NEXIUM [Suspect]
     Indication: GASTRODUODENAL ULCER
     Route: 048
     Dates: start: 20100127

REACTIONS (13)
  - JAUNDICE [None]
  - ASCITES [None]
  - HEPATIC FAILURE [None]
  - ACUTE RESPIRATORY FAILURE [None]
  - SEPSIS [None]
  - HEPATITIS CHOLESTATIC [None]
  - DRUG INTERACTION [None]
  - PROTHROMBIN TIME SHORTENED [None]
  - MULTI-ORGAN FAILURE [None]
  - ACUTE RESPIRATORY DISTRESS SYNDROME [None]
  - ALCOHOL POISONING [None]
  - LUNG DISORDER [None]
  - HAEMODYNAMIC INSTABILITY [None]
